FAERS Safety Report 6920023-8 (Version None)
Quarter: 2010Q3

REPORT INFORMATION
  Report Type: 
  Country: None (occurrence: None)
  Receive Date: 20100811
  Receipt Date: 20100730
  Transmission Date: 20110219
  Serious: Yes (Other)
  Sender: FDA-Public Use
  Company Number: US-WYE-H16621410

PATIENT
  Sex: Female
  Weight: 60.84 kg

DRUGS (8)
  1. PRISTIQ [Suspect]
     Indication: DEPRESSION
     Dosage: 100 MG IN THE MORNING AND 50 MG AT NIGHT
     Route: 048
     Dates: start: 20090101
  2. PRISTIQ [Suspect]
     Indication: ANXIETY
  3. PRISTIQ [Suspect]
     Indication: MIGRAINE
  4. AMBIEN [Concomitant]
     Indication: INSOMNIA
     Dosage: UNKNOWN
  5. VITAMINS WITH MINERALS [Concomitant]
     Dosage: UNKNOWN
  6. THYROID TAB [Concomitant]
  7. TOPAMAX [Concomitant]
     Indication: MIGRAINE
     Dosage: UNKNOWN
  8. LEVONORGESTREL AND ETHINYL ESTRADIOL [Concomitant]
     Indication: CONTRACEPTION
     Dosage: UNKNOWN

REACTIONS (5)
  - ASTHENIA [None]
  - ATTENTION DEFICIT/HYPERACTIVITY DISORDER [None]
  - DEPRESSION [None]
  - LETHARGY [None]
  - MEDICATION RESIDUE [None]
